FAERS Safety Report 7470172-3 (Version None)
Quarter: 2011Q2

REPORT INFORMATION
  Report Type: 
  Country: None (occurrence: None)
  Receive Date: 20110510
  Receipt Date: 20110509
  Transmission Date: 20111010
  Serious: Yes (Hospitalization)
  Sender: FDA-Public Use
  Company Number: B0717851A

PATIENT
  Age: 72 Year
  Sex: Female

DRUGS (1)
  1. AVANDIA [Suspect]
     Indication: DIABETES MELLITUS
     Route: 048
     Dates: start: 20010101, end: 20040101

REACTIONS (7)
  - STENT PLACEMENT [None]
  - DYSPNOEA [None]
  - ANGIOPLASTY [None]
  - CARDIAC DISORDER [None]
  - CORONARY ARTERY DISEASE [None]
  - ANGIOGRAM [None]
  - SURGERY [None]
